FAERS Safety Report 5690103-6 (Version None)
Quarter: 2008Q1

REPORT INFORMATION
  Report Type: 
  Country: None (occurrence: None)
  Receive Date: 20080331
  Receipt Date: 20080331
  Transmission Date: 20080703
  Serious: No
  Sender: FDA-Public Use
  Company Number: None

PATIENT
  Sex: Female
  Weight: 58.9676 kg

DRUGS (2)
  1. RELAFEN [Suspect]
     Indication: ARTHRALGIA
     Dosage: 2 TABLETS ONCE A DAY PO
     Route: 048
     Dates: start: 19951110, end: 19951115
  2. RELAFEN [Suspect]

REACTIONS (3)
  - DEAFNESS [None]
  - SPINAL CORD HERNIATION [None]
  - TINNITUS [None]
